FAERS Safety Report 9946440 (Version 1)
Quarter: 2014Q1

REPORT INFORMATION
  Report Type: Spontaneous
  Country: US (occurrence: US)
  Receive Date: 20140303
  Receipt Date: 20140303
  Transmission Date: 20141002
  Serious: No
  Sender: FDA-Public Use
  Company Number: US-AMGEN-USASP2014004278

PATIENT
  Age: 59 Year
  Sex: Female

DRUGS (7)
  1. ENBREL [Suspect]
     Indication: PSORIATIC ARTHROPATHY
     Dosage: 50 MG, QWK
     Route: 058
  2. CYMBALTA [Concomitant]
     Dosage: UNK
  3. FLUNISOLIDE [Concomitant]
     Dosage: UNK
  4. LORTAB                             /00917501/ [Concomitant]
     Dosage: UNK
  5. PREDNISONE [Concomitant]
     Dosage: UNK
  6. VERAPAMIL [Concomitant]
     Dosage: UNK
  7. ZETIA [Concomitant]
     Dosage: UNK

REACTIONS (1)
  - Psoriatic arthropathy [Unknown]
